FAERS Safety Report 10639483 (Version 1)
Quarter: 2014Q4

REPORT INFORMATION
  Report Type: Report from Study
  Country: US (occurrence: US)
  Receive Date: 20141209
  Receipt Date: 20141209
  Transmission Date: 20150529
  Serious: Yes (Hospitalization, Other)
  Sender: FDA-Public Use
  Company Number: US-ROCHE-1501021

PATIENT
  Age: 54 Year
  Sex: Female
  Weight: 65.4 kg

DRUGS (7)
  1. RIBASPHERE RIBAPAK [Suspect]
     Active Substance: RIBAVIRIN
     Route: 048
  2. NEURONTIN [Concomitant]
     Active Substance: GABAPENTIN
     Indication: PRODUCT USED FOR UNKNOWN INDICATION
  3. TRAMADOL [Concomitant]
     Active Substance: TRAMADOL
     Indication: PRODUCT USED FOR UNKNOWN INDICATION
  4. QUININE [Concomitant]
     Active Substance: QUININE
     Indication: PRODUCT USED FOR UNKNOWN INDICATION
  5. PEGASYS [Suspect]
     Active Substance: PEGINTERFERON ALFA-2A
     Indication: HEPATITIS C
     Dosage: FORM: PRE-FILLED SYRINGE; IN WEEK 27.180MCG/WEEK
     Route: 058
     Dates: start: 20101121, end: 20110909
  6. RIBASPHERE RIBAPAK [Suspect]
     Active Substance: RIBAVIRIN
     Route: 048
  7. RIBASPHERE RIBAPAK [Suspect]
     Active Substance: RIBAVIRIN
     Indication: HEPATITIS C
     Dosage: 600 MG IN MORNING AND 400 MG IN EVENING, WEEK 27
     Route: 048
     Dates: start: 20101121, end: 20110909

REACTIONS (36)
  - Hypotonia [Unknown]
  - Diarrhoea [Unknown]
  - Pallor [Unknown]
  - Musculoskeletal pain [Unknown]
  - Feeling abnormal [Unknown]
  - Neutropenia [Unknown]
  - Peripheral swelling [Unknown]
  - Candida infection [Unknown]
  - Chapped lips [Unknown]
  - Insomnia [Unknown]
  - Influenza [Unknown]
  - Respiratory tract congestion [Unknown]
  - Decreased appetite [Unknown]
  - Dry skin [Unknown]
  - Skin burning sensation [Unknown]
  - Alopecia [Unknown]
  - Muscle tightness [Unknown]
  - Injection site reaction [Unknown]
  - Nausea [Unknown]
  - Weight decreased [Unknown]
  - Oral herpes [Unknown]
  - Red blood cell count decreased [Unknown]
  - Cold sweat [Unknown]
  - Anaemia [Unknown]
  - Arthritis [Unknown]
  - Dizziness [Unknown]
  - White blood cell count decreased [Unknown]
  - Nervousness [Unknown]
  - Ammonia increased [Unknown]
  - Drug ineffective [Unknown]
  - Asthenia [Unknown]
  - Vomiting [Unknown]
  - Fatigue [Unknown]
  - Memory impairment [Unknown]
  - Haematocrit decreased [Unknown]
  - Asthenia [Unknown]

NARRATIVE: CASE EVENT DATE: 20101121
